FAERS Safety Report 15459048 (Version 1)
Quarter: 2018Q4

REPORT INFORMATION
  Report Type: Spontaneous
  Country: US (occurrence: US)
  Receive Date: 20181001
  Receipt Date: 20181001
  Transmission Date: 20190204
  Serious: Yes (Life-Threatening, Hospitalization, Disabling)
  Sender: FDA-Public Use
  Company Number: None

PATIENT
  Age: 16 Year
  Sex: Female
  Weight: 54 kg

DRUGS (4)
  1. LAMOTRIGINE. [Suspect]
     Active Substance: LAMOTRIGINE
     Indication: JUVENILE MYOCLONIC EPILEPSY
     Dosage: ?          QUANTITY:1 TABLET(S);?
     Route: 048
     Dates: start: 20100701, end: 20181001
  2. POST ORTHOSTATIC TACHYCARDIA SYNDROME  MIDODRINE [Concomitant]
  3. EPILESPY ZONISAMIDE [Concomitant]
  4. EPILEPSY FLORINEF [Concomitant]

REACTIONS (21)
  - Viral infection [None]
  - Diarrhoea [None]
  - Hypovolaemic shock [None]
  - Septic shock [None]
  - General physical health deterioration [None]
  - Respiratory failure [None]
  - Back pain [None]
  - Musculoskeletal stiffness [None]
  - Acute respiratory distress syndrome [None]
  - Urinary tract infection [None]
  - Cough [None]
  - Rash [None]
  - Pain [None]
  - Headache [None]
  - Salmonella sepsis [None]
  - Haemophagocytic lymphohistiocytosis [None]
  - Multiple organ dysfunction syndrome [None]
  - Pyrexia [None]
  - Pleural effusion [None]
  - Ocular hyperaemia [None]
  - Typhoid fever [None]

NARRATIVE: CASE EVENT DATE: 20130909
